FAERS Safety Report 8169483-8 (Version None)
Quarter: 2012Q1

REPORT INFORMATION
  Report Type: 
  Country: None (occurrence: None)
  Receive Date: 20120222
  Receipt Date: 20120208
  Transmission Date: 20120608
  Serious: Yes (Hospitalization, Other)
  Sender: FDA-Public Use
  Company Number: 2012US0064

PATIENT
  Sex: Female

DRUGS (1)
  1. KINERET [Suspect]
     Indication: STILL'S DISEASE ADULT ONSET

REACTIONS (10)
  - THROMBOCYTOPENIA [None]
  - ANTINUCLEAR ANTIBODY POSITIVE [None]
  - CARDIOLIPIN ANTIBODY POSITIVE [None]
  - MATERNAL EXPOSURE DURING PREGNANCY [None]
  - TRANSIENT ISCHAEMIC ATTACK [None]
  - ANTI-SS-A ANTIBODY POSITIVE [None]
  - GESTATIONAL HYPERTENSION [None]
  - ANTIPHOSPHOLIPID SYNDROME [None]
  - CAESAREAN SECTION [None]
  - AMAUROSIS FUGAX [None]
